FAERS Safety Report 4952549-0 (Version None)
Quarter: 2006Q1

REPORT INFORMATION
  Report Type: 
  Country: None (occurrence: None)
  Receive Date: 20060323
  Receipt Date: 20050105
  Transmission Date: 20060701
  Serious: Yes (Hospitalization, Disabling, Other)
  Sender: FDA-Public Use
  Company Number: US-MERCK-0501USA00579

PATIENT
  Age: 56 Year
  Sex: Male
  Weight: 85 kg

DRUGS (2)
  1. VIOXX [Suspect]
     Indication: BACK PAIN
     Route: 048
     Dates: start: 19990830, end: 20040101
  2. ASPIRIN [Concomitant]
     Route: 065

REACTIONS (16)
  - ANGINA PECTORIS [None]
  - BACK INJURY [None]
  - CORONARY ARTERY DISEASE [None]
  - FAECES DISCOLOURED [None]
  - FATIGUE [None]
  - GASTROOESOPHAGEAL REFLUX DISEASE [None]
  - HYPERPLASIA [None]
  - HYPERTENSION [None]
  - LYMPHADENOPATHY [None]
  - MELANOCYTIC NAEVUS [None]
  - MYOCARDIAL INFARCTION [None]
  - PROSTATE CANCER [None]
  - PYREXIA [None]
  - SEROMA [None]
  - SLEEP APNOEA SYNDROME [None]
  - WEIGHT INCREASED [None]
